FAERS Safety Report 8456794-1 (Version None)
Quarter: 2012Q2

REPORT INFORMATION
  Report Type: 
  Country: None (occurrence: None)
  Receive Date: 20120621
  Receipt Date: 20120612
  Transmission Date: 20120825
  Serious: Yes (Other)
  Sender: FDA-Public Use
  Company Number: NL-ABBOTT-12P-114-0946806-00

PATIENT
  Sex: Female

DRUGS (2)
  1. ANDROGEL [Suspect]
     Indication: KLINEFELTER'S SYNDROME
     Route: 062
     Dates: start: 20050101
  2. ANDROGEL [Suspect]
     Route: 062

REACTIONS (4)
  - ACCIDENTAL EXPOSURE [None]
  - LIBIDO INCREASED [None]
  - BLOOD TESTOSTERONE INCREASED [None]
  - FATIGUE [None]
